FAERS Safety Report 7879445-3 (Version None)
Quarter: 2011Q4

REPORT INFORMATION
  Report Type: 
  Country: None (occurrence: None)
  Receive Date: 20111101
  Receipt Date: 20111026
  Transmission Date: 20120403
  Serious: Yes (Other)
  Sender: FDA-Public Use
  Company Number: US-BAYER-2011-104706

PATIENT
  Sex: Female

DRUGS (2)
  1. ANTICOAGULANTS [Concomitant]
     Indication: PULMONARY EMBOLISM
     Dosage: UNK
     Dates: end: 20110901
  2. MIRENA [Suspect]
     Indication: MENORRHAGIA
     Dosage: 20 MCG/24HR, CONT
     Route: 015
     Dates: start: 20110301

REACTIONS (1)
  - PULMONARY EMBOLISM [None]
